FAERS Safety Report 13239443 (Version 1)
Quarter: 2017Q1

REPORT INFORMATION
  Report Type: Spontaneous
  Country: US (occurrence: US)
  Receive Date: 20170216
  Receipt Date: 20170216
  Transmission Date: 20170428
  Serious: No
  Sender: FDA-Public Use
  Company Number: US-RELYPSA-RLY2016003294

PATIENT
  Sex: Male

DRUGS (3)
  1. VELTASSA [Suspect]
     Active Substance: PATIROMER
     Dosage: 8.4 UNK, QOD
     Route: 065
     Dates: start: 2016
  2. VELTASSA [Suspect]
     Active Substance: PATIROMER
     Indication: PRODUCT USED FOR UNKNOWN INDICATION
     Dosage: 8.4 UNK, QD
     Route: 065
     Dates: start: 20160901, end: 2016
  3. VELTASSA [Suspect]
     Active Substance: PATIROMER
     Dosage: 4.2 UNK, QD
     Route: 065
     Dates: start: 2016

REACTIONS (4)
  - Inappropriate schedule of drug administration [Unknown]
  - Nausea [Unknown]
  - Incorrect dose administered [Unknown]
  - Abdominal pain upper [Unknown]

NARRATIVE: CASE EVENT DATE: 2016
